FAERS Safety Report 5857538-X (Version None)
Quarter: 2008Q3

REPORT INFORMATION
  Report Type: 
  Country: None (occurrence: None)
  Receive Date: 20080818
  Receipt Date: 20080714
  Transmission Date: 20090109
  Serious: No
  Sender: FDA-Public Use
  Company Number: TPA2008A00982

PATIENT
  Age: 65 Year
  Sex: Male
  Weight: 72.5755 kg

DRUGS (7)
  1. ROZEREM [Suspect]
     Indication: INSOMNIA
     Dosage: 8 MG, HS, PER ORAL
     Route: 048
     Dates: start: 20080625
  2. ZOLOFT [Concomitant]
  3. PLAVIX [Concomitant]
  4. VYTORIN (SIMVASTAT, EZETIMIBE) [Concomitant]
  5. BABY ASPIRIN (ACETYLSALICYCLIC ACID) [Concomitant]
  6. DIOVAN [Concomitant]
  7. AMBIEN CR [Concomitant]

REACTIONS (5)
  - CHOKING [None]
  - DRY MOUTH [None]
  - MIDDLE INSOMNIA [None]
  - NIGHTMARE [None]
  - POOR QUALITY SLEEP [None]
